FAERS Safety Report 4731946-2 (Version None)
Quarter: 2005Q3

REPORT INFORMATION
  Report Type: 
  Country: None (occurrence: None)
  Receive Date: 20050802
  Receipt Date: 20050722
  Transmission Date: 20060218
  Serious: Yes (Other)
  Sender: FDA-Public Use
  Company Number: GB-BRISTOL-MYERS SQUIBB COMPANY-13052022

PATIENT
  Age: 35 Year
  Sex: Male

DRUGS (1)
  1. VIDEX [Suspect]
     Route: 048

REACTIONS (1)
  - RETINITIS [None]
